FAERS Safety Report 12666093 (Version 1)
Quarter: 2016Q3

REPORT INFORMATION
  Report Type: Spontaneous
  Country: US (occurrence: US)
  Receive Date: 20160818
  Receipt Date: 20160818
  Transmission Date: 20161109
  Serious: No
  Sender: FDA-Public Use
  Company Number: US-JAZZ-2016-US-005564

PATIENT
  Age: 33 Year
  Sex: Female

DRUGS (18)
  1. OMEPRAZOLE. [Concomitant]
     Active Substance: OMEPRAZOLE
  2. ZANAFLEX [Concomitant]
     Active Substance: TIZANIDINE HYDROCHLORIDE
  3. XYREM [Suspect]
     Active Substance: SODIUM OXYBATE
     Indication: CATAPLEXY
     Dosage: 2.25 G, BID
     Route: 048
     Dates: start: 201206
  4. ZOLOFT [Concomitant]
     Active Substance: SERTRALINE HYDROCHLORIDE
  5. TYLENOL WITH CODEINE [Concomitant]
     Active Substance: ACETAMINOPHEN\CODEINE PHOSPHATE
  6. AMOXICILLIN. [Concomitant]
     Active Substance: AMOXICILLIN
  7. LORATADINE. [Concomitant]
     Active Substance: LORATADINE
  8. IBUPROFEN. [Concomitant]
     Active Substance: IBUPROFEN
  9. A/B OTIC [Concomitant]
  10. OMNARIS [Concomitant]
     Active Substance: CICLESONIDE
  11. MULTIVITAMINS [Concomitant]
     Active Substance: VITAMINS
  12. COZAAR [Concomitant]
     Active Substance: LOSARTAN POTASSIUM
  13. DEXEDRINE [Concomitant]
     Active Substance: DEXTROAMPHETAMINE SULFATE
  14. VITAMIN D [Concomitant]
     Active Substance: CHOLECALCIFEROL
  15. DEXTROAMPHETAMINE. [Concomitant]
     Active Substance: DEXTROAMPHETAMINE
  16. PROVIGIL [Concomitant]
     Active Substance: MODAFINIL
  17. XYREM [Suspect]
     Active Substance: SODIUM OXYBATE
     Indication: NARCOLEPSY
     Dosage: 2.25 G, BID
     Route: 048
     Dates: start: 200702, end: 2012
  18. VITAMIN B12 [Concomitant]
     Active Substance: CYANOCOBALAMIN

REACTIONS (5)
  - Vitamin B complex deficiency [Unknown]
  - Vitamin D decreased [Unknown]
  - Dyspepsia [Not Recovered/Not Resolved]
  - Tympanoplasty [Unknown]
  - Dental operation [Unknown]

NARRATIVE: CASE EVENT DATE: 20160318
